FAERS Safety Report 6831854-7 (Version None)
Quarter: 2010Q3

REPORT INFORMATION
  Report Type: 
  Country: None (occurrence: None)
  Receive Date: 20100712
  Receipt Date: 20100702
  Transmission Date: 20110219
  Serious: Yes (Hospitalization)
  Sender: FDA-Public Use
  Company Number: FR-PFIZER INC-2010082832

PATIENT
  Age: 60 Year
  Sex: Female

DRUGS (8)
  1. TAHOR [Suspect]
     Indication: DYSLIPIDAEMIA
     Dosage: 40 MG, UNK
     Route: 048
     Dates: start: 20010101, end: 20100604
  2. ZELITREX [Suspect]
     Indication: HERPES ZOSTER
     Dosage: 3 G, DAILY
     Route: 048
     Dates: start: 20100527, end: 20100604
  3. NEORAL [Suspect]
     Indication: RENAL TRANSPLANT
     Dosage: 70 MG, 2X/DAY
     Route: 048
     Dates: start: 19910101
  4. NEORAL [Suspect]
     Dosage: 50 MG, 2X/DAY
     Route: 048
     Dates: start: 20100606
  5. NEORAL [Suspect]
     Dosage: 25 MG, 2X/DAY
     Route: 048
     Dates: start: 20100607
  6. TRIATEC [Concomitant]
     Dosage: 5 MG, DAILY
     Route: 048
     Dates: start: 20080101, end: 20100604
  7. FOSAMAX [Concomitant]
     Indication: OSTEOPOROSIS
     Dosage: 70 MG, WEEKLY
     Route: 048
     Dates: start: 20080101, end: 20100604
  8. CORTANCYL [Concomitant]
     Indication: RENAL TRANSPLANT
     Dosage: 10 MG, 1X/DAY
     Route: 048
     Dates: start: 20080101

REACTIONS (4)
  - CYTOLYTIC HEPATITIS [None]
  - RENAL FAILURE CHRONIC [None]
  - RHABDOMYOLYSIS [None]
  - SOMNOLENCE [None]
